FAERS Safety Report 4701574-3 (Version None)
Quarter: 2005Q2

REPORT INFORMATION
  Report Type: 
  Country: None (occurrence: None)
  Receive Date: 20050628
  Receipt Date: 20050322
  Transmission Date: 20051028
  Serious: Yes (Death, Hospitalization, Other)
  Sender: FDA-Public Use
  Company Number: 2005AP01819

PATIENT
  Age: 28072 Day
  Sex: Male
  Weight: 53 kg

DRUGS (15)
  1. IRESSA [Suspect]
     Indication: SQUAMOUS CELL CARCINOMA
     Route: 048
     Dates: start: 20020918, end: 20020927
  2. MEDICON [Concomitant]
     Indication: PNEUMONIA
     Route: 048
     Dates: start: 20020807
  3. SOLANTAL [Concomitant]
     Indication: PNEUMONIA
     Route: 048
     Dates: start: 20020807
  4. FAROM [Concomitant]
     Indication: PNEUMONIA
     Route: 048
     Dates: start: 20020810, end: 20020923
  5. ENTERONON-R [Concomitant]
     Indication: PROPHYLAXIS AGAINST DIARRHOEA
     Route: 048
     Dates: start: 20020810
  6. MEROPEN [Concomitant]
     Indication: PNEUMONIA
     Route: 041
     Dates: start: 20020911, end: 20020919
  7. GATIFLO [Concomitant]
     Indication: PNEUMONIA
     Route: 048
     Dates: start: 20020920
  8. BAKUMONDO-TO [Concomitant]
     Indication: PNEUMONIA
     Route: 048
     Dates: start: 20020920
  9. TAXOTERE [Concomitant]
     Dosage: 2 COURSES
     Dates: start: 20020529, end: 20020619
  10. PARAPLATIN [Concomitant]
     Dosage: 2 COURSES
     Dates: start: 20020529, end: 20020619
  11. NAVELBINE [Concomitant]
     Dosage: 2 COURSES
     Dates: start: 20020710, end: 20020731
  12. AQUPLA [Concomitant]
     Dosage: 2 COURSES
     Dates: start: 20020710, end: 20020731
  13. CARBENIN [Concomitant]
     Dates: start: 20020805, end: 20020810
  14. UNASYN [Concomitant]
     Dates: start: 20020810
  15. TOPOTECIN [Concomitant]
     Dosage: 100 MG/BODY
     Dates: start: 20020828

REACTIONS (8)
  - BACTERIA SPUTUM IDENTIFIED [None]
  - DRUG INEFFECTIVE [None]
  - HYPOXIA [None]
  - LUNG CONSOLIDATION [None]
  - LUNG DISORDER [None]
  - PYREXIA [None]
  - RESPIRATORY FAILURE [None]
  - TUBERCULOSIS [None]
